FAERS Safety Report 6944927-5 (Version None)
Quarter: 2010Q3

REPORT INFORMATION
  Report Type: 
  Country: None (occurrence: None)
  Receive Date: 20100827
  Receipt Date: 20100820
  Transmission Date: 20110219
  Serious: Yes (Other)
  Sender: FDA-Public Use
  Company Number: CHPA2010US13482

PATIENT
  Age: 59 Year
  Sex: Male
  Weight: 72.562 kg

DRUGS (1)
  1. PRIVATE LABEL (NCH) [Suspect]
     Indication: SMOKING CESSATION THERAPY
     Dosage: 21 MG, QD
     Route: 062
     Dates: start: 20100201, end: 20100301

REACTIONS (2)
  - SHOULDER OPERATION [None]
  - STRESS [None]
